FAERS Safety Report 4356962-4 (Version None)
Quarter: 2004Q2

REPORT INFORMATION
  Report Type: 
  Country: None (occurrence: None)
  Receive Date: 20040507
  Receipt Date: 20040422
  Transmission Date: 20050107
  Serious: Yes (Other)
  Sender: FDA-Public Use
  Company Number: 200403667

PATIENT
  Age: 37 Year
  Sex: Female

DRUGS (9)
  1. UNSPECIFIED MOTRIN PRODUCT (IBUPROFEN) [Suspect]
     Indication: HEADACHE
     Dosage: UP TO 4 DAILY
     Dates: end: 20010101
  2. CELEBREX [Suspect]
     Indication: PAIN
     Dosage: 100 MG BID PRN, PO
     Route: 048
     Dates: start: 19990511, end: 19990601
  3. VIOXX [Suspect]
     Indication: PAIN
     Dosage: 12.5-50 MG DAILY, PRN, PO
     Route: 048
     Dates: start: 19990802, end: 20010101
  4. ULTRAM [Suspect]
     Indication: PAIN
     Dosage: 50-100MG, Q6H, PRN, PO
     Route: 048
     Dates: start: 19990609
  5. KETOROLAC TROMETHAMINE [Suspect]
     Indication: PAIN
     Dosage: 10MG Q6H, PRN, PO
     Route: 048
     Dates: start: 20010213, end: 20010101
  6. VICOPROFEN [Suspect]
     Indication: PAIN
     Dosage: 1 TAB Q8H, PRN, PO
     Route: 048
     Dates: start: 20010327, end: 20010101
  7. HYDROCODONE WITH ACETAMINOPHEN [Suspect]
     Indication: PAIN
     Dosage: 5/500 Q4-6H, PRN, PO
     Route: 048
     Dates: start: 20010416, end: 20010101
  8. ACETAMINOPHEN W/ CODEINE [Suspect]
     Indication: PAIN
     Dosage: 1-2 TABS Q6H, PRN, PO
     Route: 048
     Dates: start: 20010521, end: 20010101
  9. EXCEDRIN (SALICYLAMIDE) [Suspect]
     Indication: HEADACHE
     Dates: end: 20010101

REACTIONS (3)
  - NEPHROTIC SYNDROME [None]
  - RENAL FAILURE CHRONIC [None]
  - WEIGHT DECREASED [None]
